FAERS Safety Report 17450504 (Version 1)
Quarter: 2020Q1

REPORT INFORMATION
  Report Type: Spontaneous
  Country: US (occurrence: US)
  Receive Date: 20200221
  Receipt Date: 20200221
  Transmission Date: 20200409
  Serious: Yes (Hospitalization, Disabling, Other)
  Sender: FDA-Public Use
  Company Number: None

PATIENT
  Age: 41 Year
  Sex: Female

DRUGS (1)
  1. MULTIHANCE [Suspect]
     Active Substance: GADOBENATE DIMEGLUMINE

REACTIONS (27)
  - Tinnitus [None]
  - Eye disorder [None]
  - Paraesthesia [None]
  - Ocular hyperaemia [None]
  - Dysphagia [None]
  - Alopecia [None]
  - Grip strength decreased [None]
  - Formication [None]
  - Pruritus [None]
  - Dry eye [None]
  - Body temperature decreased [None]
  - Stem cell transplant [None]
  - Sleep disorder [None]
  - Dermatochalasis [None]
  - Visual impairment [None]
  - Constipation [None]
  - Vein rupture [None]
  - Complex regional pain syndrome [None]
  - Contrast media reaction [None]
  - Heart rate decreased [None]
  - Choking [None]
  - Allergy to metals [None]
  - Injection site scar [None]
  - Pain [None]
  - Amblyopia [None]
  - Gait disturbance [None]
  - Automatic bladder [None]

NARRATIVE: CASE EVENT DATE: 20170808
